FAERS Safety Report 19022481 (Version 1)
Quarter: 2021Q1

REPORT INFORMATION
  Report Type: Other
  Country: US (occurrence: GB)
  Receive Date: 20210317
  Receipt Date: 20210317
  Transmission Date: 20210420
  Serious: Yes (Life-Threatening, Hospitalization, Other)
  Sender: FDA-Public Use
  Company Number: GB-BRECKENRIDGE PHARMACEUTICAL, INC.-2108126

PATIENT
  Age: 8 Year
  Sex: Female

DRUGS (4)
  1. AZITHROMYCIN ANHYDROUS. [Concomitant]
     Active Substance: AZITHROMYCIN ANHYDROUS
  2. RISDIPLAM. [Concomitant]
     Active Substance: RISDIPLAM
  3. VITAMIN D [Concomitant]
     Active Substance: VITAMIN D NOS
  4. OMEPRAZOLE. [Suspect]
     Active Substance: OMEPRAZOLE
     Indication: GASTROOESOPHAGEAL REFLUX DISEASE

REACTIONS (5)
  - Muscular weakness [None]
  - Vomiting [None]
  - Abdominal pain [None]
  - Nausea [None]
  - Hypoglycaemic unconsciousness [None]
